FAERS Safety Report 23048589 (Version 1)
Quarter: 2023Q4

REPORT INFORMATION
  Report Type: Spontaneous
  Country: US (occurrence: US)
  Receive Date: 20231010
  Receipt Date: 20231010
  Transmission Date: 20240109
  Serious: Yes (Hospitalization, Other)
  Sender: FDA-Public Use
  Company Number: US-SANOFI-01792031

PATIENT
  Age: 80 Year
  Sex: Male

DRUGS (1)
  1. DUPIXENT [Suspect]
     Active Substance: DUPILUMAB
     Indication: Dermatitis atopic
     Dosage: 300 MG, QOW

REACTIONS (7)
  - COVID-19 [Unknown]
  - Cerebral haemorrhage [Unknown]
  - Pneumothorax [Unknown]
  - Flank pain [Unknown]
  - Dyspnoea [Unknown]
  - Rib fracture [Unknown]
  - Fall [Unknown]
